FAERS Safety Report 12398748 (Version 1)
Quarter: 2016Q2

REPORT INFORMATION
  Report Type: Report from Study
  Country: GB (occurrence: GB)
  Receive Date: 20160524
  Receipt Date: 20160524
  Transmission Date: 20160815
  Serious: Yes (Death, Life-Threatening, Hospitalization)
  Sender: FDA-Public Use
  Company Number: GB-JNJFOC-20160322331

PATIENT
  Age: 56 Year
  Sex: Male
  Weight: 105 kg

DRUGS (1)
  1. STELARA [Suspect]
     Active Substance: USTEKINUMAB
     Indication: PSORIASIS
     Route: 058
     Dates: start: 20150317

REACTIONS (6)
  - Colectomy [Unknown]
  - Inflammatory marker increased [Unknown]
  - Death [Fatal]
  - Myocardial infarction [Not Recovered/Not Resolved]
  - Atrial fibrillation [Unknown]
  - Pyrexia [Unknown]

NARRATIVE: CASE EVENT DATE: 201601
